FAERS Safety Report 6194436-9 (Version None)
Quarter: 2009Q2

REPORT INFORMATION
  Report Type: 
  Country: None (occurrence: None)
  Receive Date: 20090519
  Receipt Date: 20090514
  Transmission Date: 20091009
  Serious: Yes (Other)
  Sender: FDA-Public Use
  Company Number: FR-WYE-G03144309

PATIENT
  Sex: Male
  Weight: 70 kg

DRUGS (6)
  1. TORISEL [Suspect]
     Indication: RENAL CANCER METASTATIC
     Route: 042
     Dates: start: 20081217, end: 20090101
  2. TORISEL [Suspect]
     Route: 042
     Dates: start: 20090101
  3. LANSOPRAZOLE [Concomitant]
     Dosage: 30 MG
     Route: 048
     Dates: start: 20081025
  4. PERINDOPRIL ERBUMINE [Concomitant]
     Indication: HYPERTENSION
     Dosage: 2 MG
     Route: 048
     Dates: start: 20081217
  5. SKENAN [Concomitant]
     Indication: PAIN
     Dosage: 120 MG
     Route: 048
     Dates: start: 20081025
  6. LYRICA [Concomitant]
     Indication: PAIN
     Dosage: 50 MG
     Route: 048
     Dates: start: 20081025

REACTIONS (1)
  - FEBRILE BONE MARROW APLASIA [None]
